FAERS Safety Report 15907194 (Version 3)
Quarter: 2019Q3

REPORT INFORMATION
  Report Type: Spontaneous
  Country: US (occurrence: US)
  Receive Date: 20190204
  Receipt Date: 20190919
  Transmission Date: 20191004
  Serious: Yes (Hospitalization, Other)
  Sender: FDA-Public Use
  Company Number: US-PFIZER INC-2019051206

PATIENT
  Age: 63 Year
  Sex: Female
  Weight: 141.95 kg

DRUGS (1)
  1. IBRANCE [Suspect]
     Active Substance: PALBOCICLIB
     Indication: BREAST CANCER METASTATIC
     Dosage: 125 MG, CYCLIC [D 1-21Q28DAYS]
     Route: 048
     Dates: start: 20190116, end: 201907

REACTIONS (5)
  - Fracture [Unknown]
  - Nausea [Unknown]
  - Asthenia [Unknown]
  - Neoplasm progression [Unknown]
  - Fall [Unknown]

NARRATIVE: CASE EVENT DATE: 20190116
